FAERS Safety Report 18779958 (Version 5)
Quarter: 2021Q2

REPORT INFORMATION
  Report Type: Report from Study
  Country: CZ (occurrence: CZ)
  Receive Date: 20210125
  Receipt Date: 20210611
  Transmission Date: 20210717
  Serious: Yes (Death, Hospitalization)
  Sender: FDA-Public Use
  Company Number: CZ-ROCHE-1825471

PATIENT
  Age: 69 Year
  Sex: Female
  Weight: 58 kg

DRUGS (42)
  1. RITUXIMAB. [Suspect]
     Active Substance: RITUXIMAB
     Indication: FOLLICULAR LYMPHOMA
     Dosage: DRUG INTERRUPTED. DATE OF MOST RECENT DOSE OF RITUXIMAB PRIOR TO SAE WAS 10/AUG/2016 AT 12:15. (600
     Route: 042
     Dates: start: 20160518
  2. INDOMETACIN [Concomitant]
     Active Substance: INDOMETHACIN
     Indication: BACK PAIN
     Dates: end: 20160906
  3. KYTRIL [Concomitant]
     Active Substance: GRANISETRON HYDROCHLORIDE
     Indication: PROPHYLAXIS OF NAUSEA AND VOMITING
     Dates: start: 20160810, end: 20160811
  4. KYTRIL [Concomitant]
     Active Substance: GRANISETRON HYDROCHLORIDE
     Dates: start: 20160710, end: 20160720
  5. DEXAMED (CZECH REPUBLIC) [Concomitant]
     Dates: start: 20160921, end: 20160929
  6. POLATUZUMAB VEDOTIN. [Suspect]
     Active Substance: POLATUZUMAB VEDOTIN
     Indication: FOLLICULAR LYMPHOMA
     Dosage: DATE OF MOST RECENT DOSE (104.4 MG) OF POLATUZUMAB VEDOTIN PRIOR TO SAE WAS 10/AUG/2016 AT 15:50. DR
     Route: 042
     Dates: start: 20160519
  7. FENTALIS [Concomitant]
     Active Substance: FENTANYL
     Indication: BACK PAIN
     Dates: end: 20160906
  8. PARALEN (CZECH REPUBLIC) [Concomitant]
     Indication: PREMEDICATION
     Dates: start: 20160810, end: 20160810
  9. NORMAL SALINE [Concomitant]
     Active Substance: SODIUM CHLORIDE
     Indication: PROPHYLAXIS AGAINST DEHYDRATION
     Dates: start: 20160906, end: 20160909
  10. NEBILET [Concomitant]
     Active Substance: NEBIVOLOL
     Indication: ATRIAL TACHYCARDIA
     Dates: start: 201608, end: 20160917
  11. LACTULOSE. [Concomitant]
     Active Substance: LACTULOSE
     Indication: PROPHYLAXIS
     Dates: end: 20160906
  12. FRAXIPARIN [Concomitant]
     Active Substance: NADROPARIN CALCIUM
     Dates: start: 20160915, end: 20160918
  13. CIPROFLOXACIN. [Concomitant]
     Active Substance: CIPROFLOXACIN
     Dates: start: 20160928, end: 20161003
  14. KALNORMIN [Concomitant]
     Active Substance: POTASSIUM CHLORIDE
     Dates: start: 20160906, end: 20160907
  15. DEGAN [Concomitant]
     Active Substance: METOCLOPRAMIDE HYDROCHLORIDE
     Indication: NAUSEA
     Dates: start: 20160710, end: 20160720
  16. GUTALAX [Concomitant]
     Indication: CONSTIPATION
     Dates: start: 201608, end: 20160906
  17. APAURIN [Concomitant]
     Active Substance: DIAZEPAM
     Dates: start: 20160915, end: 20160915
  18. ZOVIRAX [Concomitant]
     Active Substance: ACYCLOVIR
     Dates: start: 20160928, end: 20161003
  19. BENDAMUSTINE [Suspect]
     Active Substance: BENDAMUSTINE
     Indication: FOLLICULAR LYMPHOMA
     Dosage: DATE OF MOST RECENT DOSE (144 MG) OF BENDAMUSTINE PRIOR TO SAE WAS 11/AUG/2016. DRUG INTERRUPTED. ON
     Route: 042
     Dates: start: 20160519
  20. TRITTICO [Concomitant]
     Active Substance: TRAZODONE HYDROCHLORIDE
     Indication: MIXED ANXIETY AND DEPRESSIVE DISORDER
     Dates: end: 20160913
  21. NEBILET [Concomitant]
     Active Substance: NEBIVOLOL
     Indication: HYPERTENSION
     Dates: start: 201608, end: 20161004
  22. NEBILET [Concomitant]
     Active Substance: NEBIVOLOL
     Indication: SINUS TACHYCARDIA
  23. ATORVASTATIN [Concomitant]
     Active Substance: ATORVASTATIN
     Indication: PROPHYLAXIS
     Dosage: PROPHYLAXIS OF HYPERLIPIDEMIA
     Dates: end: 20160919
  24. LEXAURIN [Concomitant]
     Active Substance: BROMAZEPAM
     Indication: DEPRESSION
     Dates: start: 20160906, end: 20160906
  25. LEXAURIN [Concomitant]
     Active Substance: BROMAZEPAM
     Dates: start: 20160907
  26. ORTANOL [Concomitant]
     Active Substance: OMEPRAZOLE
     Indication: PROPHYLAXIS AGAINST GASTROINTESTINAL ULCER
     Dates: start: 201608
  27. NUTRIFLEX SPECIAL [Concomitant]
     Indication: WEIGHT DECREASED
     Dates: start: 20160919, end: 20161002
  28. DEXAMED (CZECH REPUBLIC) [Concomitant]
     Dates: start: 20161001, end: 20161005
  29. DEXAMED (CZECH REPUBLIC) [Concomitant]
     Dates: start: 20161006, end: 20161006
  30. HYDROCORTISON [Concomitant]
     Active Substance: HYDROCORTISONE
     Indication: PREMEDICATION
     Dates: start: 20160810, end: 20160810
  31. ZOLOFT [Concomitant]
     Active Substance: SERTRALINE HYDROCHLORIDE
     Indication: DEPRESSION
     Dates: start: 20160807, end: 20160913
  32. SOLUVIT [Concomitant]
     Active Substance: VITAMINS
     Indication: WEIGHT DECREASED
     Dates: start: 20160919, end: 20161002
  33. DEXAMED (CZECH REPUBLIC) [Concomitant]
     Indication: NEOPLASM MALIGNANT
     Dates: start: 20160916, end: 20160919
  34. DEXAMED (CZECH REPUBLIC) [Concomitant]
     Dates: start: 20160930, end: 20160930
  35. GODASAL [Concomitant]
     Active Substance: ASPIRIN\GLYCINE
     Dates: start: 20160909, end: 20160914
  36. KALNORMIN [Concomitant]
     Active Substance: POTASSIUM CHLORIDE
     Indication: HYPOKALAEMIA
     Dosage: PROPHYLAXIS OF HYPOKALEMIA
     Dates: start: 20160713
  37. GODASAL [Concomitant]
     Active Substance: ASPIRIN\GLYCINE
     Indication: THROMBOSIS PROPHYLAXIS
     Dates: end: 20160906
  38. DITHIADEN [Concomitant]
     Active Substance: BISULEPIN
     Indication: PREMEDICATION
     Dates: start: 20160810, end: 20160810
  39. NOVALGIN (CZECH REPUBLIC) [Concomitant]
     Indication: BACK PAIN
     Dates: start: 20160906, end: 20160908
  40. METOTREXAT [Concomitant]
     Active Substance: METHOTREXATE SODIUM
     Indication: LYMPHOMA
     Dates: start: 20160920, end: 20160920
  41. METOTREXAT [Concomitant]
     Active Substance: METHOTREXATE SODIUM
     Indication: NEOPLASM MALIGNANT
     Dosage: 12 MG
     Dates: start: 20160915, end: 20160915
  42. DEXAMED (CZECH REPUBLIC) [Concomitant]
     Dates: start: 20160920, end: 20160920

REACTIONS (4)
  - Febrile neutropenia [Recovered/Resolved]
  - Asthenia [Not Recovered/Not Resolved]
  - Brain oedema [Fatal]
  - Pneumonia [Recovered/Resolved]

NARRATIVE: CASE EVENT DATE: 20160819
